FAERS Safety Report 6775265-1 (Version None)
Quarter: 2010Q2

REPORT INFORMATION
  Report Type: 
  Country: None (occurrence: None)
  Receive Date: 20100617
  Receipt Date: 20100615
  Transmission Date: 20101027
  Serious: Yes (Hospitalization)
  Sender: FDA-Public Use
  Company Number: GXKR2010DE06566

PATIENT
  Age: 58 Year
  Sex: Male
  Weight: 60 kg

DRUGS (10)
  1. ASPIRIN [Suspect]
     Indication: CAROTID ARTERY STENOSIS
     Dosage: 100 MG, QD
     Route: 048
     Dates: start: 20080701, end: 20081204
  2. ASPIRIN [Suspect]
     Indication: ACUTE MYOCARDIAL INFARCTION
     Dosage: 1 AMPOULE 0.5 G AS BOLUS INJECTION
     Route: 042
     Dates: start: 20081124, end: 20081124
  3. HEPARIN [Concomitant]
     Indication: CORONARY ARTERY DISEASE
  4. REOPRO [Concomitant]
  5. PANTOZOL [Concomitant]
     Indication: PROPHYLAXIS AGAINST GASTROINTESTINAL ULCER
  6. ALLOPURINOL [Concomitant]
  7. NITRENDIPINE [Concomitant]
  8. RAMIPRIL [Concomitant]
  9. BISOPROLOL [Concomitant]
  10. ISCOVER [Concomitant]
     Indication: STENT PLACEMENT

REACTIONS (1)
  - COLITIS [None]
